FAERS Safety Report 21639470 (Version 1)
Quarter: 2022Q4

REPORT INFORMATION
  Report Type: Spontaneous
  Country: PT (occurrence: PT)
  Receive Date: 20221124
  Receipt Date: 20221124
  Transmission Date: 20230113
  Serious: Yes (Other)
  Sender: FDA-Public Use
  Company Number: PT-MLMSERVICE-2022110939100241

PATIENT
  Age: 8 Decade
  Sex: Female

DRUGS (6)
  1. ETOPOSIDE [Suspect]
     Active Substance: ETOPOSIDE
     Indication: Neuroendocrine carcinoma
     Dosage: 100 MG/M2 ON D1-D3 (TWO CYCLES)
     Route: 042
  2. CISPLATIN [Suspect]
     Active Substance: CISPLATIN
     Indication: Neuroendocrine carcinoma
     Dosage: 80 MG/M2 ON D1 (2 CYCLES)
     Route: 042
  3. CISPLATIN [Suspect]
     Active Substance: CISPLATIN
     Indication: Small cell carcinoma
     Dosage: TWO CYCLES OF 3 WEEKLY CISPLATIN AND RECEIVED TWO MORE CYCLES OF CISPLATIN
  4. CISPLATIN [Suspect]
     Active Substance: CISPLATIN
     Indication: Vaginal cancer
  5. ETOPOSIDE [Suspect]
     Active Substance: ETOPOSIDE
     Indication: Small cell carcinoma
     Dosage: TWO CYCLES OF 3WEEKLY ETOPOSIDE AND RECEIVED TWO MORE CYCLES OF ETOPOSIDE
  6. ETOPOSIDE [Suspect]
     Active Substance: ETOPOSIDE
     Indication: Vaginal cancer

REACTIONS (3)
  - Peripheral sensory neuropathy [Recovered/Resolved]
  - Asthenia [Recovered/Resolved]
  - Off label use [Unknown]
